FAERS Safety Report 8488685-4 (Version None)
Quarter: 2012Q2

REPORT INFORMATION
  Report Type: 
  Country: None (occurrence: None)
  Receive Date: 20120626
  Receipt Date: 20120614
  Transmission Date: 20120825
  Serious: Yes (Other)
  Sender: FDA-Public Use
  Company Number: AUR-APL-2012-02717

PATIENT
  Age: 74 Year
  Sex: Female
  Weight: 77.1 kg

DRUGS (4)
  1. VENLAFAXINE HCL [Suspect]
     Indication: DEPRESSION
     Dosage: UNKNOWN
     Dates: start: 20110101
  2. VENLAFAXINE HCL [Suspect]
     Indication: STRESS
     Dosage: UNKNOWN
     Dates: start: 20110101
  3. EFFEXOR XR [Suspect]
     Indication: STRESS
     Dosage: 75 MG (75 MG, 1 IN 1 D), ORAL
     Route: 048
     Dates: start: 20110101
  4. EFFEXOR XR [Suspect]
     Indication: DEPRESSION
     Dosage: 75 MG (75 MG, 1 IN 1 D), ORAL
     Route: 048
     Dates: start: 20110101

REACTIONS (7)
  - HYPERSENSITIVITY [None]
  - ECONOMIC PROBLEM [None]
  - PYREXIA [None]
  - HIP SURGERY [None]
  - ABDOMINAL DISCOMFORT [None]
  - NAUSEA [None]
  - KNEE ARTHROPLASTY [None]
